FAERS Safety Report 12790461 (Version 1)
Quarter: 2016Q3

REPORT INFORMATION
  Report Type: Spontaneous
  Country: CN (occurrence: CN)
  Receive Date: 20160929
  Receipt Date: 20160929
  Transmission Date: 20161109
  Serious: Yes (Other)
  Sender: FDA-Public Use
  Company Number: CN-BAXTER-2016BAX048914

PATIENT
  Age: 59 Year
  Sex: Male
  Weight: 59.2 kg

DRUGS (8)
  1. 10% GLUCOSE  INJECTION [Suspect]
     Active Substance: DEXTROSE
     Indication: HYPOGLYCAEMIA
     Route: 041
     Dates: start: 20160224, end: 20160224
  2. PROMETHAZINE [Suspect]
     Active Substance: PROMETHAZINE\PROMETHAZINE HYDROCHLORIDE
     Indication: BLOOD PRESSURE DECREASED
     Route: 030
     Dates: start: 20160224
  3. DEXAMETHASONE. [Suspect]
     Active Substance: DEXAMETHASONE
     Indication: TEMPERATURE INTOLERANCE
  4. PROMETHAZINE [Suspect]
     Active Substance: PROMETHAZINE\PROMETHAZINE HYDROCHLORIDE
     Indication: TEMPERATURE INTOLERANCE
  5. DEXAMETHASONE. [Suspect]
     Active Substance: DEXAMETHASONE
     Indication: BLOOD PRESSURE DECREASED
     Route: 041
     Dates: start: 20160224
  6. 10% GLUCOSE  INJECTION [Suspect]
     Active Substance: DEXTROSE
     Indication: HYPOPHAGIA
  7. PROMETHAZINE [Suspect]
     Active Substance: PROMETHAZINE\PROMETHAZINE HYDROCHLORIDE
     Indication: CHILLS
  8. DEXAMETHASONE. [Suspect]
     Active Substance: DEXAMETHASONE
     Indication: CHILLS

REACTIONS (4)
  - Blood pressure decreased [Recovered/Resolved]
  - Temperature intolerance [Recovered/Resolved]
  - Pyrexia [Recovered/Resolved]
  - Chills [Recovered/Resolved]

NARRATIVE: CASE EVENT DATE: 20160224
